FAERS Safety Report 5047311-7 (Version None)
Quarter: 2006Q3

REPORT INFORMATION
  Report Type: 
  Country: None (occurrence: None)
  Receive Date: 20060711
  Receipt Date: 20060629
  Transmission Date: 20061208
  Serious: Yes (Disabling)
  Sender: FDA-Public Use
  Company Number: 2006SE03691

PATIENT
  Age: 70 Year
  Sex: Female

DRUGS (1)
  1. NAROPIN [Suspect]
     Indication: NERVE BLOCK
     Route: 053

REACTIONS (1)
  - DIPLOPIA [None]
